FAERS Safety Report 18467824 (Version 1)
Quarter: 2020Q4

REPORT INFORMATION
  Report Type: Spontaneous
  Country: US (occurrence: US)
  Receive Date: 20201104
  Receipt Date: 20201104
  Transmission Date: 20210114
  Serious: No
  Sender: FDA-Public Use
  Company Number: None

PATIENT
  Age: 54 Year
  Sex: Male

DRUGS (14)
  1. ZYPREXA [Suspect]
     Active Substance: OLANZAPINE
     Dates: start: 20200801
  2. DEPAKOTE [Suspect]
     Active Substance: DIVALPROEX SODIUM
  3. CRESTOR [Suspect]
     Active Substance: ROSUVASTATIN CALCIUM
  4. ANORO ELLIPTA [Suspect]
     Active Substance: UMECLIDINIUM BROMIDE\VILANTEROL TRIFENATATE
  5. AMBIEN [Suspect]
     Active Substance: ZOLPIDEM TARTRATE
  6. MELATONIN [Suspect]
     Active Substance: MELATONIN
  7. FLONASE [Suspect]
     Active Substance: FLUTICASONE PROPIONATE
  8. ZYRTEC [Suspect]
     Active Substance: CETIRIZINE HYDROCHLORIDE
  9. METOPROLOL. [Suspect]
     Active Substance: METOPROLOL
  10. ELIQUIS [Suspect]
     Active Substance: APIXABAN
  11. DILTIAZEM. [Suspect]
     Active Substance: DILTIAZEM
  12. ALBUTEROL. [Suspect]
     Active Substance: ALBUTEROL
  13. PANTOPRAZOLE [Suspect]
     Active Substance: PANTOPRAZOLE
  14. VITAMIN C [Suspect]
     Active Substance: ASCORBIC ACID

REACTIONS (8)
  - Photophobia [None]
  - Irritability [None]
  - Decreased appetite [None]
  - Insomnia [None]
  - Abdominal discomfort [None]
  - Anxiety [None]
  - Vision blurred [None]
  - Confusional state [None]

NARRATIVE: CASE EVENT DATE: 20200801
